FAERS Safety Report 7083647-6 (Version None)
Quarter: 2010Q4

REPORT INFORMATION
  Report Type: 
  Country: None (occurrence: None)
  Receive Date: 20101103
  Receipt Date: 20101103
  Transmission Date: 20110411
  Serious: Yes (Life-Threatening, Hospitalization)
  Sender: FDA-Public Use
  Company Number: None

PATIENT
  Age: 72 Year
  Sex: Female

DRUGS (12)
  1. CEFAZOLIN [Suspect]
     Indication: INFECTION PROPHYLAXIS
     Dosage: ONE TIME SUBCONJUNCTIVAL
     Route: 057
     Dates: start: 20100513, end: 20100513
  2. VANCOMYCIN [Concomitant]
  3. MARCAINE [Concomitant]
  4. LIDOCAINE [Concomitant]
  5. VITRASE [Concomitant]
  6. BACITRACIN [Concomitant]
  7. DEPO-MEDROL [Concomitant]
  8. ATROPINE [Concomitant]
  9. BETOPTIC [Concomitant]
  10. TOBRADEX [Concomitant]
  11. TRUSOPT [Concomitant]
  12. ALPHAGAN [Concomitant]

REACTIONS (1)
  - ANAPHYLACTIC REACTION [None]
